FAERS Safety Report 8080032-5 (Version None)
Quarter: 2012Q1

REPORT INFORMATION
  Report Type: 
  Country: None (occurrence: None)
  Receive Date: 20120128
  Receipt Date: 20110811
  Transmission Date: 20120608
  Serious: No
  Sender: FDA-Public Use
  Company Number: US-ABBOTT-11P-163-0845840-00

PATIENT
  Sex: Female

DRUGS (6)
  1. HYDROCODONE BITARTRATE [Concomitant]
     Indication: PAIN
     Dosage: PRN
  2. PREDNISONE TAB [Concomitant]
     Indication: INFLAMMATION
  3. ALBUTEROL [Concomitant]
     Indication: PRODUCT USED FOR UNKNOWN INDICATION
     Dosage: DAILY, AS NEEDED
  4. LORAZEPAM [Concomitant]
     Indication: MUSCLE SPASMS
     Dosage: PRN
  5. WELLBUTRIN [Concomitant]
     Indication: DEPRESSION
     Dosage: DAILY
  6. HUMIRA [Suspect]
     Indication: CROHN'S DISEASE
     Dosage: DAY 1
     Dates: start: 20110803

REACTIONS (5)
  - MUSCLE TWITCHING [None]
  - ILL-DEFINED DISORDER [None]
  - INFLUENZA LIKE ILLNESS [None]
  - INJECTION SITE PAIN [None]
  - MYALGIA [None]
